FAERS Safety Report 19830271 (Version 2)
Quarter: 2021Q3

REPORT INFORMATION
  Report Type: Report from Study
  Country: CO (occurrence: CO)
  Receive Date: 20210915
  Receipt Date: 20210925
  Transmission Date: 20211014
  Serious: Yes (Hospitalization)
  Sender: FDA-Public Use
  Company Number: NVSC2021CO151430

PATIENT
  Sex: Female

DRUGS (2)
  1. COSENTYX [Suspect]
     Active Substance: SECUKINUMAB
     Indication: PSORIASIS
     Dosage: 150 MG, QMO
     Route: 058
  2. COSENTYX [Suspect]
     Active Substance: SECUKINUMAB
     Dosage: 300 MG, QMO
     Route: 058

REACTIONS (9)
  - Pulmonary mass [Unknown]
  - Throat lesion [Unknown]
  - Depression [Unknown]
  - Skin swelling [Unknown]
  - Psoriasis [Unknown]
  - Stress [Unknown]
  - Asthenia [Unknown]
  - Hypersensitivity [Unknown]
  - Illness [Not Recovered/Not Resolved]
